FAERS Safety Report 9881086 (Version 2)
Quarter: 2014Q1

REPORT INFORMATION
  Report Type: Spontaneous
  Country: US (occurrence: US)
  Receive Date: 20140207
  Receipt Date: 20140207
  Transmission Date: 20141002
  Serious: Yes (Other)
  Sender: FDA-Public Use
  Company Number: US-RB-050123-13

PATIENT
  Age: 25 Year
  Sex: Female
  Weight: 71 kg

DRUGS (14)
  1. SUBOXONE TABLET [Suspect]
     Indication: DRUG DEPENDENCE
     Route: 060
     Dates: start: 20110627, end: 20130128
  2. SUBOXONE FILM [Suspect]
     Indication: PRODUCT USED FOR UNKNOWN INDICATION
     Dosage: SUBOXONE FILM; DOSING DETAILS UNKNOWN
     Route: 060
     Dates: end: 20130107
  3. SUBUTEX [Suspect]
     Indication: DRUG DEPENDENCE
     Route: 060
     Dates: start: 20130128
  4. NICOTINE [Concomitant]
     Indication: PRODUCT USED FOR UNKNOWN INDICATION
     Dosage: 15 CIGARETTES DAILY
     Route: 055
     Dates: start: 2000
  5. PRENATAL VITAMINS [Concomitant]
     Indication: PREGNANCY
     Dosage: DOSING DETAILS UNKNOWN
     Route: 065
     Dates: start: 20130117
  6. VENTOLIN [Concomitant]
     Indication: PRODUCT USED FOR UNKNOWN INDICATION
     Dosage: DOSING DETAILS UNKNOWN; STARTED PRIOR TO PREGNANCY
     Route: 065
  7. ALBUTEROL SULFATE [Concomitant]
     Indication: PRODUCT USED FOR UNKNOWN INDICATION
     Dosage: TAKING 4 TIMES A DAY, AS NEEDED; STARTED PRIOR TO PREGNANCY
     Route: 065
  8. ALBUTEROL SULFATE [Concomitant]
     Dosage: 2 PUFFS
     Route: 065
  9. LANTUS [Concomitant]
     Indication: PRODUCT USED FOR UNKNOWN INDICATION
     Dosage: TAKING 24 UNITS IN THE EVENING OR AFTERNOON
     Route: 065
  10. HUMULIN R [Concomitant]
     Indication: PRODUCT USED FOR UNKNOWN INDICATION
     Dosage: 4 UNITS PER MEAL
     Route: 065
     Dates: start: 20130408
  11. ZOFRAN [Concomitant]
     Indication: NAUSEA
     Dosage: TAKING 4 MG AS NEEDED
     Route: 065
     Dates: start: 20130131
  12. ZOFRAN [Concomitant]
     Indication: VOMITING
     Dosage: TAKING 4 MG AS NEEDED
     Route: 065
     Dates: start: 20130131
  13. VASOTEC [Concomitant]
     Indication: PRODUCT USED FOR UNKNOWN INDICATION
     Dosage: DOSING DETAILS UNKNWON
     Route: 065
     Dates: start: 20131028
  14. LASIX [Concomitant]
     Indication: PRODUCT USED FOR UNKNOWN INDICATION
     Dosage: FURTHER DOSING DETAILS UNKNOWN
     Route: 065
     Dates: start: 20131028

REACTIONS (7)
  - Maternal exposure during pregnancy [Recovered/Resolved]
  - Nausea [Unknown]
  - Vomiting [Unknown]
  - Gestational hypertension [Unknown]
  - Pre-eclampsia [Unknown]
  - Premature labour [Recovered/Resolved]
  - Premature delivery [Recovered/Resolved]
